FAERS Safety Report 9484965 (Version 2)
Quarter: 2013Q3

REPORT INFORMATION
  Report Type: Report from Study
  Country: US (occurrence: US)
  Receive Date: 20130828
  Receipt Date: 20130828
  Transmission Date: 20140515
  Serious: No
  Sender: FDA-Public Use
  Company Number: US-ABBOTT-13P-163-1099631-00

PATIENT
  Age: 56 Year
  Sex: Male
  Weight: 103.51 kg

DRUGS (2)
  1. ANDROGEL [Suspect]
     Indication: BLOOD TESTOSTERONE DECREASED
     Dates: start: 2011
  2. ANDROGEL [Suspect]
     Dosage: 4 PUMP DEPRESSION

REACTIONS (2)
  - Joint swelling [Not Recovered/Not Resolved]
  - Blood testosterone decreased [Not Recovered/Not Resolved]
